FAERS Safety Report 11380926 (Version 1)
Quarter: 2015Q3

REPORT INFORMATION
  Report Type: Spontaneous
  Country: US (occurrence: None)
  Receive Date: 20150813
  Receipt Date: 20150813
  Transmission Date: 20151125
  Serious: No
  Sender: FDA-Public Use
  Company Number: None

PATIENT
  Age: 55 Year
  Sex: Male

DRUGS (2)
  1. CAPECITABINE. [Suspect]
     Active Substance: CAPECITABINE
     Route: 048
     Dates: start: 20150714
  2. CAPECITABINE. [Suspect]
     Active Substance: CAPECITABINE
     Route: 048
     Dates: start: 20150714

REACTIONS (8)
  - Lacrimation increased [None]
  - Balance disorder [None]
  - Eye pain [None]
  - Weight decreased [None]
  - Epistaxis [None]
  - Rhinalgia [None]
  - Blindness transient [None]
  - Impaired driving ability [None]
